FAERS Safety Report 21295465 (Version 2)
Quarter: 2022Q3

REPORT INFORMATION
  Report Type: Report from Study
  Country: US (occurrence: US)
  Receive Date: 20220905
  Receipt Date: 20220912
  Transmission Date: 20221026
  Serious: Yes (Hospitalization)
  Sender: FDA-Public Use
  Company Number: US-BRISTOL-MYERS SQUIBB COMPANY-2022-099160

PATIENT
  Age: 59 Year
  Sex: Female

DRUGS (3)
  1. MAVACAMTEN [Suspect]
     Active Substance: MAVACAMTEN
     Indication: Hypertrophic cardiomyopathy
     Route: 048
     Dates: start: 20220616
  2. MAVACAMTEN [Suspect]
     Active Substance: MAVACAMTEN
     Route: 048
     Dates: start: 20220809
  3. MAVACAMTEN [Suspect]
     Active Substance: MAVACAMTEN
     Route: 048
     Dates: start: 20220901

REACTIONS (1)
  - Dizziness [Unknown]

NARRATIVE: CASE EVENT DATE: 20220828
